FAERS Safety Report 7604515-4 (Version None)
Quarter: 2011Q3

REPORT INFORMATION
  Report Type: 
  Country: None (occurrence: None)
  Receive Date: 20110712
  Receipt Date: 20110629
  Transmission Date: 20111222
  Serious: Yes (Hospitalization, Disabling, Other)
  Sender: FDA-Public Use
  Company Number: SE-UCBSA-033066

PATIENT
  Sex: Male

DRUGS (8)
  1. NSAIDS-COX 1 [Concomitant]
     Dates: start: 20080407
  2. VIAGRA [Concomitant]
     Indication: ERECTILE DYSFUNCTION
     Dosage: 50 MG
  3. CIMZIA [Suspect]
     Indication: RHEUMATOID ARTHRITIS
     Dosage: 200, 200 MG
     Route: 058
     Dates: start: 20110105, end: 20110427
  4. METHOTREXATE [Suspect]
     Indication: RHEUMATOID ARTHRITIS
     Dosage: 12.5, 12.5 MG, 10MG
     Dates: start: 20080407, end: 20110427
  5. TRAMADOL HCL [Concomitant]
     Indication: PAIN
     Dosage: 50 MG 1X1-3 TOTAL DAILY DOSE: 50-150MG
  6. PREDNISOLONE [Suspect]
     Indication: RHEUMATOID ARTHRITIS
     Dosage: 5,5, MG
     Dates: start: 20080407
  7. ALVEDON [Concomitant]
     Indication: PAIN
     Dosage: 1G 1X1-4 TOTAL DAILY DOSE: 1G-4G
  8. ORNILIS (UNKNOWN) [Concomitant]
     Indication: PAIN

REACTIONS (3)
  - PARAPLEGIA [None]
  - SPINAL CORD COMPRESSION [None]
  - PROSTATE CANCER METASTATIC [None]
